FAERS Safety Report 26199715 (Version 1)
Quarter: 2025Q4

REPORT INFORMATION
  Report Type: Other
  Country: IN (occurrence: IN)
  Receive Date: 20251225
  Receipt Date: 20251225
  Transmission Date: 20260117
  Serious: Yes (Death, Life-Threatening)
  Sender: ANI
  Company Number: IN-ANIPHARMA-035609

PATIENT
  Sex: Male

DRUGS (2)
  1. VANCOMYCIN [Suspect]
     Active Substance: VANCOMYCIN
     Indication: Meningitis bacterial
     Dosage: ANTIBIOTICS
  2. CEFTRIAXONE [Concomitant]
     Active Substance: CEFTRIAXONE
     Indication: Meningitis bacterial
     Dosage: ANTIBIOTICS

REACTIONS (1)
  - Drug ineffective [Fatal]
